FAERS Safety Report 15777054 (Version 2)
Quarter: 2019Q2

REPORT INFORMATION
  Report Type: Spontaneous
  Country: JP (occurrence: JP)
  Receive Date: 20181231
  Receipt Date: 20190402
  Transmission Date: 20190711
  Serious: Yes (Hospitalization, Other)
  Sender: FDA-Public Use
  Company Number: JP-PFIZER INC-2018531073

PATIENT
  Age: 61 Year
  Sex: Female

DRUGS (1)
  1. CABERGOLINE. [Suspect]
     Active Substance: CABERGOLINE
     Indication: PROLACTIN-PRODUCING PITUITARY TUMOUR
     Dosage: 0.25 MG, UNK (ONCE EVERY 2 WEEKS)

REACTIONS (2)
  - Carotid aneurysm rupture [Recovered/Resolved]
  - Arteriovenous fistula [Recovered/Resolved]
